FAERS Safety Report 5269614-3 (Version None)
Quarter: 2007Q1

REPORT INFORMATION
  Report Type: 
  Country: None (occurrence: None)
  Receive Date: 20061213
  Receipt Date: 20030828
  Transmission Date: 20070707
  Serious: No
  Sender: FDA-Public Use
  Company Number: 2003UW04120

PATIENT
  Age: 65 Year
  Sex: Female
  Weight: 83.9154 kg

DRUGS (4)
  1. TAMOXIFEN CITRATE [Suspect]
     Indication: BREAST CANCER
     Dosage: 20 MG DAILY;PO
     Route: 048
     Dates: start: 20001020, end: 20030228
  2. DYAZIDE [Concomitant]
  3. ZYRTEC [Concomitant]
  4. EFFEXOR [Concomitant]

REACTIONS (2)
  - CATARACT [None]
  - VISUAL ACUITY REDUCED [None]
